FAERS Safety Report 21860907 (Version 1)
Quarter: 2023Q1

REPORT INFORMATION
  Report Type: Spontaneous
  Country: US (occurrence: None)
  Receive Date: 20230113
  Receipt Date: 20230113
  Transmission Date: 20230417
  Serious: Yes (Hospitalization)
  Sender: FDA-Public Use
  Company Number: None

PATIENT
  Sex: Male
  Weight: 75 kg

DRUGS (23)
  1. MAVYRET [Suspect]
     Active Substance: GLECAPREVIR\PIBRENTASVIR
     Indication: Hepatitis C
     Dosage: FREQUENCY : DAILY;?
     Route: 048
     Dates: start: 20190326, end: 20190618
  2. ACETYLCYSTEINE [Concomitant]
     Active Substance: ACETYLCYSTEINE
  3. ASPIRIN [Concomitant]
     Active Substance: ASPIRIN
  4. ATOVAQUONE [Concomitant]
     Active Substance: ATOVAQUONE
  5. AZITHROMYCIN [Concomitant]
     Active Substance: AZITHROMYCIN
  6. CALCIUM CITRATE\CHOLECALCIFEROL [Concomitant]
     Active Substance: CALCIUM CITRATE\CHOLECALCIFEROL
  7. CETIRIZINE [Concomitant]
     Active Substance: CETIRIZINE HYDROCHLORIDE
  8. ESOMEPRAZOLE [Concomitant]
     Active Substance: ESOMEPRAZOLE
  9. FERROUS SULFATE [Concomitant]
     Active Substance: FERROUS SULFATE
  10. GABAPENTIN [Concomitant]
     Active Substance: GABAPENTIN
  11. INSULIN LISPRO [Concomitant]
     Active Substance: INSULIN LISPRO
  12. LEVALBUTEROL [Concomitant]
     Active Substance: LEVALBUTEROL
  13. MAGNESIUM OXIDE [Concomitant]
     Active Substance: MAGNESIUM OXIDE
  14. MIRTAZAPINE [Concomitant]
     Active Substance: MIRTAZAPINE
  15. VITAMINS [Concomitant]
     Active Substance: VITAMINS
  16. CELLCEPT [Concomitant]
     Active Substance: MYCOPHENOLATE MOFETIL
  17. NEBIVOLOL [Concomitant]
     Active Substance: NEBIVOLOL
  18. POSACONAZOLE [Concomitant]
     Active Substance: POSACONAZOLE
  19. PREDNISONE [Concomitant]
     Active Substance: PREDNISONE
  20. ROSUVASTATIN [Concomitant]
     Active Substance: ROSUVASTATIN
  21. TACROLIMUS [Concomitant]
     Active Substance: TACROLIMUS
  22. TRAMADOL [Concomitant]
     Active Substance: TRAMADOL
  23. VALGANCICLOVIR [Concomitant]
     Active Substance: VALGANCICLOVIR

REACTIONS (10)
  - Fatigue [None]
  - Oedema peripheral [None]
  - Malaise [None]
  - Decreased appetite [None]
  - Nausea [None]
  - Dizziness [None]
  - Balance disorder [None]
  - Headache [None]
  - Dyspnoea [None]
  - Neutropenia [None]

NARRATIVE: CASE EVENT DATE: 20190529
